FAERS Safety Report 19705185 (Version 1)
Quarter: 2021Q3

REPORT INFORMATION
  Report Type: Spontaneous
  Country: CO (occurrence: CO)
  Receive Date: 20210816
  Receipt Date: 20210816
  Transmission Date: 20211014
  Serious: Yes (Hospitalization, Other)
  Sender: FDA-Public Use
  Company Number: CO-REGENERON PHARMACEUTICALS, INC.-2021-74277

PATIENT

DRUGS (1)
  1. PRALUENT [Suspect]
     Active Substance: ALIROCUMAB
     Indication: PRODUCT USED FOR UNKNOWN INDICATION
     Dosage: UNK
     Route: 058
     Dates: start: 20191212

REACTIONS (7)
  - SARS-CoV-2 test positive [Recovering/Resolving]
  - Nervous system disorder [Recovering/Resolving]
  - COVID-19 pneumonia [Recovering/Resolving]
  - Oxygen saturation abnormal [Recovering/Resolving]
  - Cell marker increased [Recovering/Resolving]
  - Dyspnoea [Recovering/Resolving]
  - Muscle atrophy [Recovering/Resolving]

NARRATIVE: CASE EVENT DATE: 2021
